FAERS Safety Report 9783346 (Version 1)
Quarter: 2013Q4

REPORT INFORMATION
  Report Type: Spontaneous
  Country: US (occurrence: US)
  Receive Date: 20131226
  Receipt Date: 20131226
  Transmission Date: 20140711
  Serious: Yes (Hospitalization)
  Sender: FDA-Public Use
  Company Number: US-BAYER-2013-156685

PATIENT
  Age: 38 Year
  Sex: Female
  Weight: 90 kg

DRUGS (6)
  1. YASMIN [Suspect]
  2. CELEBREX [Concomitant]
     Dosage: 200 MG, UNK
  3. NEXIUM [Concomitant]
     Dosage: 40 MG, UNK
  4. VALTREX [Concomitant]
     Dosage: 500 MG, UNK
  5. VIOXX [Concomitant]
     Dosage: 25 MG, UNK
  6. TYLENOL ES [Concomitant]

REACTIONS (2)
  - Pulmonary embolism [None]
  - Deep vein thrombosis [None]
